FAERS Safety Report 23494138 (Version 3)
Quarter: 2024Q1

REPORT INFORMATION
  Report Type: Spontaneous
  Country: IN (occurrence: IN)
  Receive Date: 20240207
  Receipt Date: 20240314
  Transmission Date: 20240410
  Serious: Yes (Other)
  Sender: FDA-Public Use
  Company Number: IN-PFIZER INC-2021003838

PATIENT
  Age: 64 Year
  Sex: Male

DRUGS (1)
  1. SUTENT [Suspect]
     Active Substance: SUNITINIB MALATE
     Indication: Metastatic renal cell carcinoma
     Dosage: 37.5MG ONCE A DAY
     Route: 048
     Dates: start: 20201226, end: 20230311

REACTIONS (4)
  - Chronic kidney disease [Unknown]
  - Blood creatinine increased [Unknown]
  - Renal disorder [Unknown]
  - Splenomegaly [Unknown]

NARRATIVE: CASE EVENT DATE: 20201231
